FAERS Safety Report 7232962-1 (Version None)
Quarter: 2011Q1

REPORT INFORMATION
  Report Type: 
  Country: None (occurrence: None)
  Receive Date: 20110119
  Receipt Date: 20110114
  Transmission Date: 20110831
  Serious: Yes (Death, Other)
  Sender: FDA-Public Use
  Company Number: JP-GENZYME-FLUD-1000634

PATIENT

DRUGS (5)
  1. CYCLOPHOSPHAMIDE [Suspect]
     Indication: BONE MARROW TRANSPLANT
     Dosage: 50 MG/KG, QD ON DAYS -5,-4, -3, AND -2
     Route: 042
  2. ACYCLOVIR [Concomitant]
     Indication: INFECTION PROPHYLAXIS
     Dosage: 10 MG/KG, QD
  3. POLYMYCIN B SULFATE [Concomitant]
     Indication: INFECTION PROPHYLAXIS
     Dosage: 300 X 10E4, QD
     Route: 048
  4. FLUDARA [Suspect]
     Indication: BONE MARROW TRANSPLANT
     Dosage: 30 MG/M2, QD ON DAYS -5, -4, -3, -2
     Route: 042
  5. VANCOMYCIN [Concomitant]
     Indication: INFECTION PROPHYLAXIS
     Dosage: 500 MG/M2, QD

REACTIONS (14)
  - NEPHROTIC SYNDROME [None]
  - THROMBOTIC MICROANGIOPATHY [None]
  - FEBRILE NEUTROPENIA [None]
  - DEVICE RELATED INFECTION [None]
  - ACUTE GRAFT VERSUS HOST DISEASE [None]
  - CHRONIC GRAFT VERSUS HOST DISEASE [None]
  - SCLERODERMA [None]
  - ENCEPHALOPATHY [None]
  - CYSTITIS HAEMORRHAGIC [None]
  - ARTHROPATHY [None]
  - HERPES ZOSTER [None]
  - INTERSTITIAL LUNG DISEASE [None]
  - CYSTITIS VIRAL [None]
  - PNEUMONIA FUNGAL [None]
